FAERS Safety Report 25711288 (Version 1)
Quarter: 2025Q3

REPORT INFORMATION
  Report Type: Spontaneous
  Country: US (occurrence: US)
  Receive Date: 20250821
  Receipt Date: 20250821
  Transmission Date: 20251020
  Serious: No
  Sender: MYLAN
  Company Number: US-MYLANLABS-2025M1068747

PATIENT
  Age: 54 Year
  Sex: Female

DRUGS (13)
  1. LYRICA [Suspect]
     Active Substance: PREGABALIN
     Indication: Product used for unknown indication
  2. LYRICA [Suspect]
     Active Substance: PREGABALIN
  3. CLONAZEPAM [Concomitant]
     Active Substance: CLONAZEPAM
  4. DEPAKOTE [Concomitant]
     Active Substance: DIVALPROEX SODIUM
  5. CYMBALTA [Concomitant]
     Active Substance: DULOXETINE HYDROCHLORIDE
  6. BISOPROLOL [Concomitant]
     Active Substance: BISOPROLOL
  7. WELCHOL [Concomitant]
     Active Substance: COLESEVELAM HYDROCHLORIDE
  8. COLACE [Concomitant]
     Active Substance: DOCUSATE SODIUM
  9. HYOSCYAMINE [Concomitant]
     Active Substance: HYOSCYAMINE
  10. LEVOTHYROXINE [Concomitant]
     Active Substance: LEVOTHYROXINE
  11. LOSARTAN [Concomitant]
     Active Substance: LOSARTAN
  12. OXYBUTYNIN [Concomitant]
     Active Substance: OXYBUTYNIN
  13. PREGABALIN [Concomitant]
     Active Substance: PREGABALIN

REACTIONS (2)
  - Asthenia [Unknown]
  - Depression [Unknown]
